FAERS Safety Report 6620816-0 (Version None)
Quarter: 2010Q1

REPORT INFORMATION
  Report Type: 
  Country: None (occurrence: None)
  Receive Date: 20100303
  Receipt Date: 20100218
  Transmission Date: 20100710
  Serious: Yes (Other)
  Sender: FDA-Public Use
  Company Number: TRP_06805_2010

PATIENT
  Sex: Female

DRUGS (3)
  1. RIBAPAK (NOT SPECIFIED) [Suspect]
     Indication: HEPATITIS C
     Dosage: DF ORAL
     Route: 048
     Dates: start: 20091016
  2. PEG-INTRON [Suspect]
     Indication: HEPATITIS C
     Dosage: DF SUBCUTANEOUS
     Route: 058
     Dates: start: 20091016
  3. METFORMIN HYDROCHLORIDE [Concomitant]

REACTIONS (4)
  - DEHYDRATION [None]
  - DYSPNOEA [None]
  - OEDEMA [None]
  - RESPIRATORY DISORDER [None]
